FAERS Safety Report 6087243-9 (Version None)
Quarter: 2009Q1

REPORT INFORMATION
  Report Type: 
  Country: None (occurrence: None)
  Receive Date: 20090219
  Receipt Date: 20081028
  Transmission Date: 20090719
  Serious: No
  Sender: FDA-Public Use
  Company Number: WAES 0808USA04948

PATIENT
  Age: 38 Year
  Sex: Male
  Weight: 71.2147 kg

DRUGS (5)
  1. ISENTRESS [Suspect]
     Indication: HIV INFECTION
     Dosage: 400 MG/BID/PO
     Route: 048
     Dates: start: 20080128
  2. NEXIUM [Concomitant]
  3. QVAR 40 [Concomitant]
  4. TRUVADA [Concomitant]
  5. ZIAGEN [Concomitant]

REACTIONS (2)
  - ANXIETY [None]
  - INSOMNIA [None]
